FAERS Safety Report 5034826-0 (Version None)
Quarter: 2006Q2

REPORT INFORMATION
  Report Type: 
  Country: None (occurrence: None)
  Receive Date: 20060519
  Receipt Date: 20060223
  Transmission Date: 20061013
  Serious: No
  Sender: FDA-Public Use
  Company Number: TPA2006A00327

PATIENT
  Age: 54 Year
  Sex: Female
  Weight: 74.8435 kg

DRUGS (7)
  1. ROZEREM [Suspect]
     Indication: INSOMNIA
     Dosage: 8 MG, HS, PER ORAL
     Route: 048
     Dates: start: 20060222
  2. ZYRTEC [Concomitant]
  3. ACTIVELLA [Concomitant]
  4. EFFEXOR XR (VENALFAXINE HYDROCHLORIDE) (75 MILLIGRAM) [Concomitant]
  5. UNK VITAMINS (VITAMINS) [Concomitant]
  6. OS-CAL (ERGOCALCIFEROL, CALCIUM) [Concomitant]
  7. GLUCOSAMINE WITH CHONDROITIN (GLUCOSAMINE, CHONDROITIN SULFATE) [Concomitant]

REACTIONS (3)
  - DRUG INEFFECTIVE [None]
  - INITIAL INSOMNIA [None]
  - MIDDLE INSOMNIA [None]
